FAERS Safety Report 6382785-0 (Version None)
Quarter: 2009Q3

REPORT INFORMATION
  Report Type: 
  Country: None (occurrence: None)
  Receive Date: 20090928
  Receipt Date: 20090928
  Transmission Date: 20100115
  Serious: No
  Sender: FDA-Public Use
  Company Number: None

PATIENT
  Age: 56 Year
  Sex: Male
  Weight: 95.2554 kg

DRUGS (1)
  1. COZAAR [Suspect]
     Indication: DIABETES MELLITUS
     Dosage: ONE TABLET DAY DAILEY
     Dates: start: 20090501, end: 20090927

REACTIONS (4)
  - HEART RATE DECREASED [None]
  - HYPOTENSION [None]
  - OEDEMA PERIPHERAL [None]
  - WEIGHT INCREASED [None]
